FAERS Safety Report 4952379-X (Version None)
Quarter: 2006Q1

REPORT INFORMATION
  Report Type: 
  Country: None (occurrence: None)
  Receive Date: 20060320
  Receipt Date: 20060308
  Transmission Date: 20060701
  Serious: Yes (Hospitalization)
  Sender: FDA-Public Use
  Company Number: 2006030868

PATIENT
  Age: 16 Year
  Sex: Female

DRUGS (1)
  1. ROGAINE [Suspect]
     Indication: FEMALE PATTERN BALDNESS
     Dosage: ^AS DIRECTED^ DAILY, TOPICAL
     Route: 061
     Dates: start: 20050101, end: 20060101

REACTIONS (1)
  - THROMBOCYTOPENIA [None]
